FAERS Safety Report 17680897 (Version 1)
Quarter: 2020Q2

REPORT INFORMATION
  Report Type: Report from Study
  Country: CA (occurrence: CA)
  Receive Date: 20200417
  Receipt Date: 20200417
  Transmission Date: 20200714
  Serious: Yes (Hospitalization)
  Sender: FDA-Public Use
  Company Number: PHHY2019CA181820

PATIENT
  Sex: Male

DRUGS (4)
  1. POTASSIUM [Concomitant]
     Active Substance: POTASSIUM
     Indication: PRODUCT USED FOR UNKNOWN INDICATION
     Dosage: UNK
     Route: 048
  2. GLEEVEC [Suspect]
     Active Substance: IMATINIB MESYLATE
     Indication: GASTROINTESTINAL STROMAL TUMOUR
     Dosage: 400 MG, QD
     Route: 048
     Dates: start: 20190704
  3. GLEEVEC [Suspect]
     Active Substance: IMATINIB MESYLATE
     Dosage: 400 MG, QD
     Route: 048
     Dates: start: 20190717
  4. IRON [Concomitant]
     Active Substance: IRON
     Indication: PRODUCT USED FOR UNKNOWN INDICATION
     Dosage: UNK UNK, TID
     Route: 048

REACTIONS (14)
  - Headache [Unknown]
  - Anaemia [Unknown]
  - Abdominal pain upper [Unknown]
  - Chills [Unknown]
  - Asthenia [Unknown]
  - Feeling cold [Not Recovered/Not Resolved]
  - Dyspnoea [Unknown]
  - Decreased appetite [Recovering/Resolving]
  - Peripheral coldness [Unknown]
  - Vomiting [Recovering/Resolving]
  - Drug hypersensitivity [Unknown]
  - Nasopharyngitis [Unknown]
  - Constipation [Unknown]
  - Weight decreased [Unknown]
